FAERS Safety Report 8221769-4 (Version None)
Quarter: 2012Q1

REPORT INFORMATION
  Report Type: 
  Country: None (occurrence: None)
  Receive Date: 20120320
  Receipt Date: 20120320
  Transmission Date: 20120608
  Serious: Yes (Disabling)
  Sender: FDA-Public Use
  Company Number: None

PATIENT
  Age: 87 Year
  Sex: Male
  Weight: 63.956 kg

DRUGS (1)
  1. TRAZODONE HCL [Suspect]
     Indication: INSOMNIA
     Dates: start: 20111007, end: 20111007

REACTIONS (5)
  - GAIT DISTURBANCE [None]
  - CONDITION AGGRAVATED [None]
  - TREMOR [None]
  - HEAD TITUBATION [None]
  - SELF-MEDICATION [None]
